FAERS Safety Report 6346342-4 (Version None)
Quarter: 2009Q3

REPORT INFORMATION
  Report Type: 
  Country: None (occurrence: None)
  Receive Date: 20090909
  Receipt Date: 20090828
  Transmission Date: 20100115
  Serious: Yes (Other)
  Sender: FDA-Public Use
  Company Number: FR-AMGEN-US222522

PATIENT
  Sex: Male

DRUGS (4)
  1. ENBREL [Suspect]
     Indication: PSORIASIS
     Route: 058
     Dates: start: 20050704, end: 20050923
  2. ENBREL [Suspect]
     Route: 058
     Dates: start: 20051219, end: 20060126
  3. ENBREL [Suspect]
     Route: 058
     Dates: start: 20060424, end: 20060529
  4. ENBREL [Suspect]
     Route: 058
     Dates: start: 20060717, end: 20060825

REACTIONS (1)
  - BASAL CELL CARCINOMA [None]
